FAERS Safety Report 10470668 (Version 2)
Quarter: 2014Q3

REPORT INFORMATION
  Report Type: Spontaneous
  Country: US (occurrence: US)
  Receive Date: 20140923
  Receipt Date: 20140923
  Transmission Date: 20150326
  Serious: Yes (Death, Hospitalization)
  Sender: FDA-Public Use
  Company Number: US-GLAXOSMITHKLINE-A0817322A

PATIENT
  Sex: Female

DRUGS (1)
  1. AVANDIA [Suspect]
     Active Substance: ROSIGLITAZONE MALEATE
     Indication: DIABETES MELLITUS
     Dosage: 4MG TWICE PER DAY
     Route: 048
     Dates: start: 20031219, end: 20070920

REACTIONS (5)
  - Cardiac failure [Unknown]
  - Supraventricular tachycardia [Unknown]
  - Myocardial infarction [Fatal]
  - Pleural effusion [Unknown]
  - Atrial fibrillation [Unknown]
